FAERS Safety Report 6588293-6 (Version None)
Quarter: 2010Q1

REPORT INFORMATION
  Report Type: 
  Country: None (occurrence: None)
  Receive Date: 20100218
  Receipt Date: 20100216
  Transmission Date: 20100710
  Serious: Yes (Hospitalization, Other)
  Sender: FDA-Public Use
  Company Number: JP-SANOFI-AVENTIS-2010SA002917

PATIENT
  Age: 77 Year
  Sex: Male
  Weight: 48 kg

DRUGS (9)
  1. PLAVIX [Suspect]
     Indication: CEREBRAL INFARCTION
     Route: 048
     Dates: start: 20090617, end: 20100119
  2. LINTON [Concomitant]
     Indication: SCHIZOPHRENIA
     Dosage: TABLETS OF 3 MG ARE TAKEN THREE TIMES A DAY, ONE, TWO, AND TWO.
     Route: 048
     Dates: start: 20090622
  3. ZOTEPINE [Concomitant]
     Indication: SCHIZOPHRENIA
     Route: 048
     Dates: start: 20090622
  4. TASMOLIN [Concomitant]
     Indication: SCHIZOPHRENIA
     Route: 048
     Dates: start: 20021113
  5. PROPITAN [Concomitant]
     Indication: SCHIZOPHRENIA
     Route: 048
  6. TAKEPRON [Concomitant]
     Indication: REFLUX OESOPHAGITIS
     Route: 048
     Dates: start: 20090916
  7. HARNAL [Concomitant]
     Route: 048
     Dates: start: 20090916
  8. SENNOSIDE A [Concomitant]
     Indication: CONSTIPATION
     Route: 048
  9. MAGNESIUM OXIDE [Concomitant]
     Indication: CONSTIPATION
     Route: 048
     Dates: start: 20100130

REACTIONS (2)
  - DRUG INTERACTION [None]
  - HYPOALBUMINAEMIA [None]
